FAERS Safety Report 13374068 (Version 1)
Quarter: 2017Q1

REPORT INFORMATION
  Report Type: Spontaneous
  Country: US (occurrence: US)
  Receive Date: 20170327
  Receipt Date: 20170327
  Transmission Date: 20170429
  Serious: Yes (Other)
  Sender: FDA-Public Use
  Company Number: US-BAYER-2017-053103

PATIENT
  Age: 23 Year
  Sex: Female

DRUGS (1)
  1. MIRENA [Suspect]
     Active Substance: LEVONORGESTREL
     Indication: CONTRACEPTION
     Dosage: 20 MCG/24HR, CONT
     Route: 015
     Dates: start: 201610, end: 20170317

REACTIONS (5)
  - Device breakage [Unknown]
  - Device difficult to use [Unknown]
  - Abdominal pain lower [Unknown]
  - Complication of device removal [None]
  - Device expulsion [Unknown]

NARRATIVE: CASE EVENT DATE: 20170214
